FAERS Safety Report 5346538-4 (Version None)
Quarter: 2007Q2

REPORT INFORMATION
  Report Type: 
  Country: None (occurrence: None)
  Receive Date: 20070430
  Receipt Date: 20070208
  Transmission Date: 20071010
  Serious: Yes (Other)
  Sender: FDA-Public Use
  Company Number: 012753

PATIENT
  Age: 50 Year
  Sex: Female

DRUGS (3)
  1. PRIALT [Suspect]
     Indication: BACK PAIN
     Dosage: SEE IMAGE
     Route: 037
     Dates: start: 20060101, end: 20060101
  2. PRIALT [Suspect]
     Indication: BACK PAIN
     Dosage: SEE IMAGE
     Route: 037
     Dates: start: 20060101, end: 20060101
  3. PRIALT [Suspect]
     Indication: BACK PAIN
     Dosage: SEE IMAGE
     Route: 037
     Dates: start: 20060101, end: 20070103

REACTIONS (5)
  - CONFUSIONAL STATE [None]
  - HALLUCINATION, AUDITORY [None]
  - MEMORY IMPAIRMENT [None]
  - MYALGIA [None]
  - SUICIDAL IDEATION [None]
